FAERS Safety Report 8735285 (Version 2)
Quarter: 2012Q4

REPORT INFORMATION
  Report Type: 
  Country: IT (occurrence: IT)
  Receive Date: 20120821
  Receipt Date: 20120913
  Transmission Date: 20130627
  Serious: Yes (Other)
  Sender: FDA-Public Use
  Company Number: IT-MYLANLABS-2012S1016467

PATIENT
  Age: 40 Year
  Sex: Female

DRUGS (6)
  1. PACLITAXEL [Suspect]
     Indication: BREAST CANCER METASTATIC
     Route: 042
     Dates: start: 20120705, end: 20120730
  2. FARMORUBICINA [Concomitant]
     Indication: PRODUCT USED FOR UNKNOWN INDICATION
     Dates: start: 20120705, end: 20120730
  3. TRIMETON /00072502/ [Concomitant]
     Indication: PRODUCT USED FOR UNKNOWN INDICATION
  4. SOLUCORTEF [Concomitant]
     Indication: PRODUCT USED FOR UNKNOWN INDICATION
  5. RANIDIL [Concomitant]
     Indication: PRODUCT USED FOR UNKNOWN INDICATION
  6. ONDANSETRON [Concomitant]
     Indication: PRODUCT USED FOR UNKNOWN INDICATION

REACTIONS (3)
  - Abdominal pain upper [Recovered/Resolved]
  - Scotoma [Recovered/Resolved]
  - Generalised erythema [Recovered/Resolved]
